FAERS Safety Report 8150639 (Version 2)
Quarter: 2013Q1

REPORT INFORMATION
  Report Type: Spontaneous
  Country: US (occurrence: US)
  Receive Date: 20110922
  Receipt Date: 20130218
  Transmission Date: 20140127
  Serious: Yes (Other)
  Sender: FDA-Public Use
  Company Number: US-ASTRAZENECA-2011SE12505

PATIENT
  Age: 455 Month
  Sex: Male

DRUGS (6)
  1. SEROQUEL [Suspect]
     Indication: AFFECTIVE DISORDER
     Dosage: 50 MG IN MORNING AND 100 MG AT NIGHT
     Route: 048
     Dates: start: 20070515
  2. SEROQUEL [Suspect]
     Indication: AFFECTIVE DISORDER
     Dosage: HALF TABLET EVERY MORNING AND FOUR TABLETS AT NIGHT
     Route: 048
     Dates: start: 20100909
  3. LITHIUM [Concomitant]
     Route: 048
     Dates: start: 20070515
  4. ZOLPIDEM [Concomitant]
     Route: 048
     Dates: start: 20070515
  5. LAMOTRIGINE [Concomitant]
     Dosage: ONE TABLET EVERY MORNING AND TWO TABLETS AT NIGHT THEN TWO TABLETS TWICE DAILY
     Route: 048
     Dates: start: 20100909
  6. TRAZODONE [Concomitant]
     Route: 048
     Dates: start: 20100909

REACTIONS (5)
  - Pancreatitis [Unknown]
  - Diabetic coma [Unknown]
  - Type 2 diabetes mellitus [Unknown]
  - Diabetes mellitus inadequate control [Unknown]
  - Weight increased [Unknown]
